FAERS Safety Report 26101465 (Version 1)
Quarter: 2025Q4

REPORT INFORMATION
  Report Type: Spontaneous
  Country: GB (occurrence: GB)
  Receive Date: 20251128
  Receipt Date: 20251128
  Transmission Date: 20260118
  Serious: Yes (Other)
  Sender: Kenvue
  Company Number: None

PATIENT
  Age: 62 Year
  Weight: 78 kg

DRUGS (12)
  1. ACETAMINOPHEN [Interacting]
     Active Substance: ACETAMINOPHEN
     Indication: Product used for unknown indication
     Dosage: UNK
     Route: 065
  2. IBUPROFEN [Interacting]
     Active Substance: IBUPROFEN
     Indication: Product used for unknown indication
     Dosage: UNK
     Route: 065
  3. DEXAMETHASONE\NEOMYCIN\POLYMYXIN B [Interacting]
     Active Substance: DEXAMETHASONE\NEOMYCIN\POLYMYXIN B
     Indication: Anaesthesia reversal
     Dosage: ONE PACK FOR EACH NOSTRIL , REMOVED ONCE NOTED RASH IN RECOVERY
  4. DEXAMETHASONE\NEOMYCIN\POLYMYXIN B [Interacting]
     Active Substance: DEXAMETHASONE\NEOMYCIN\POLYMYXIN B
     Indication: Epistaxis
  5. SUGAMMADEX [Interacting]
     Active Substance: SUGAMMADEX
     Indication: Anaesthesia reversal
     Route: 065
  6. MIDAZOLAM [Interacting]
     Active Substance: MIDAZOLAM
     Indication: Anxiety
     Route: 065
  7. REMIFENTANIL [Interacting]
     Active Substance: REMIFENTANIL
     Indication: General anaesthesia
  8. PROPOFOL [Interacting]
     Active Substance: PROPOFOL
     Indication: General anaesthesia
  9. OXYCODONE [Interacting]
     Active Substance: OXYCODONE
     Indication: General anaesthesia
     Route: 065
  10. ONDANSETRON [Interacting]
     Active Substance: ONDANSETRON
     Indication: Product used for unknown indication
     Route: 065
  11. LIDOCAINE HYDROCHLORIDE [Interacting]
     Active Substance: LIDOCAINE HYDROCHLORIDE
     Indication: Infiltration anaesthesia
     Dosage: UNK
     Route: 065
  12. ROCURONIUM [Interacting]
     Active Substance: ROCURONIUM BROMIDE
     Indication: Product used for unknown indication
     Dosage: UNK
     Route: 065

REACTIONS (3)
  - Drug interaction [Unknown]
  - Pallor [Unknown]
  - Rash pruritic [Recovering/Resolving]
